FAERS Safety Report 9551040 (Version 2)
Quarter: 2013Q3

REPORT INFORMATION
  Report Type: Spontaneous
  Country: RU (occurrence: RU)
  Receive Date: 20130925
  Receipt Date: 20130925
  Transmission Date: 20140515
  Serious: Yes (Death)
  Sender: FDA-Public Use
  Company Number: RU-SANOFI-AVENTIS-CERZ-1003120

PATIENT
  Age: 15 Month
  Sex: Female
  Weight: 6 kg

DRUGS (8)
  1. CEREZYME [Suspect]
     Indication: GAUCHER^S DISEASE
     Dosage: 66.6 U/KG, Q2W DOSE:66.6 UNIT(S)/KILOGRAM BODYWEIGHT
     Route: 042
     Dates: start: 20121112, end: 20121126
  2. VALPROIC ACID [Concomitant]
     Dosage: UNK
  3. ACETAZOLAMIDE [Concomitant]
     Dosage: UNK
  4. ALL OTHER THERAPEUTIC PRODUCTS [Concomitant]
     Dosage: UNK
  5. ALL OTHER THERAPEUTIC PRODUCTS [Concomitant]
     Dosage: UNK
  6. ALL OTHER THERAPEUTIC PRODUCTS [Concomitant]
     Dosage: UNK
  7. ALL OTHER THERAPEUTIC PRODUCTS [Concomitant]
     Dosage: UNK
  8. RELANIUM [Concomitant]
     Dosage: UNK

REACTIONS (1)
  - Disease progression [Fatal]
